FAERS Safety Report 7739878-2 (Version None)
Quarter: 2011Q3

REPORT INFORMATION
  Report Type: 
  Country: None (occurrence: None)
  Receive Date: 20110909
  Receipt Date: 20110830
  Transmission Date: 20111222
  Serious: Yes (Hospitalization)
  Sender: FDA-Public Use
  Company Number: PHHY2011JP74917

PATIENT
  Age: 71 Week
  Sex: Female

DRUGS (2)
  1. ZOLEDRONIC ACID [Suspect]
     Indication: METASTASES TO BONE
  2. PAMIDRONATE DISODIUM [Suspect]
     Indication: METASTASES TO BONE

REACTIONS (3)
  - OSTEONECROSIS OF JAW [None]
  - EXPOSED BONE IN JAW [None]
  - TOOTH SOCKET HAEMORRHAGE [None]
